FAERS Safety Report 4781483-4 (Version None)
Quarter: 2005Q3

REPORT INFORMATION
  Report Type: 
  Country: None (occurrence: None)
  Receive Date: 20050928
  Receipt Date: 20050811
  Transmission Date: 20060218
  Serious: Yes (Life-Threatening, Hospitalization, Other)
  Sender: FDA-Public Use
  Company Number: US-MERCK-0508USA02120

PATIENT
  Age: 57 Year
  Sex: Female
  Weight: 92 kg

DRUGS (11)
  1. VYTORIN [Suspect]
     Indication: HYPERCHOLESTEROLAEMIA
     Route: 048
     Dates: start: 20040901, end: 20050801
  2. LASIX [Concomitant]
     Route: 048
  3. SPIRONOLACTONE [Concomitant]
     Indication: CARDIAC FAILURE CONGESTIVE
     Route: 048
     Dates: start: 20011001
  4. PRINIVIL [Concomitant]
     Indication: CARDIAC FAILURE CONGESTIVE
     Route: 048
     Dates: start: 20021001
  5. PRINIVIL [Concomitant]
     Indication: HYPERTENSION
     Route: 048
     Dates: start: 20021001
  6. COREG [Concomitant]
     Indication: CARDIAC FAILURE CONGESTIVE
     Route: 048
     Dates: start: 20021001
  7. COREG [Concomitant]
     Indication: HYPERTENSION
     Route: 048
     Dates: start: 20021001
  8. GLUCOPHAGE XR [Concomitant]
     Indication: DIABETES MELLITUS NON-INSULIN-DEPENDENT
     Route: 048
     Dates: start: 20040901
  9. PROTONIX [Concomitant]
     Indication: GASTROOESOPHAGEAL REFLUX DISEASE
     Route: 048
     Dates: start: 20050801
  10. SINGULAIR [Concomitant]
     Indication: ASTHMA
     Route: 048
     Dates: start: 20050801
  11. ASPIRIN [Concomitant]
     Route: 048
     Dates: start: 20050801

REACTIONS (2)
  - ASTHMA [None]
  - BLOOD CREATINE PHOSPHOKINASE INCREASED [None]
